FAERS Safety Report 5411617-X (Version None)
Quarter: 2007Q3

REPORT INFORMATION
  Report Type: 
  Country: None (occurrence: None)
  Receive Date: 20070810
  Receipt Date: 20070729
  Transmission Date: 20080115
  Serious: Yes (Other)
  Sender: FDA-Public Use
  Company Number: US-PFIZER INC-2007063411

PATIENT
  Sex: Female
  Weight: 59 kg

DRUGS (12)
  1. CHANTIX [Suspect]
     Indication: SMOKING CESSATION THERAPY
     Dates: start: 20070415, end: 20070429
  2. ACETYLSALICYLIC ACID SRT [Concomitant]
  3. PLETAL [Concomitant]
  4. IMDUR [Concomitant]
  5. PLAVIX [Concomitant]
  6. ADVAIR DISKUS 100/50 [Concomitant]
  7. ALL OTHER THERAPEUTIC PRODUCTS [Concomitant]
  8. ALBUTEROL [Concomitant]
  9. SIMVASTATIN [Concomitant]
  10. EFFEXOR [Concomitant]
  11. MONTELUKAST SODIUM [Concomitant]
  12. ZYRTEC [Concomitant]

REACTIONS (1)
  - IMPAIRED DRIVING ABILITY [None]
